FAERS Safety Report 11434086 (Version 1)
Quarter: 2015Q3

REPORT INFORMATION
  Report Type: Spontaneous
  Country: US (occurrence: None)
  Receive Date: 20150828
  Receipt Date: 20150828
  Transmission Date: 20151125
  Serious: Yes (Disabling)
  Sender: FDA-Public Use
  Company Number: None

PATIENT
  Age: 32 Year
  Sex: Female
  Weight: 48.08 kg

DRUGS (5)
  1. LOW OGESTEROL BIRTH CONTROL [Concomitant]
  2. PROAIR INHALER [Concomitant]
  3. VITAMIN D [Concomitant]
     Active Substance: CHOLECALCIFEROL
  4. NASACORT AQ [Concomitant]
     Active Substance: TRIAMCINOLONE ACETONIDE
  5. SYMBICORT [Suspect]
     Active Substance: BUDESONIDE\FORMOTEROL FUMARATE DIHYDRATE
     Indication: ASTHMA
     Dosage: 2 PUFFS TWICE DAILY INHALATION
     Route: 055
     Dates: start: 20150131, end: 20150820

REACTIONS (6)
  - Wheelchair user [None]
  - Impaired work ability [None]
  - Fatigue [None]
  - Hypotension [None]
  - Asthenia [None]
  - Vitamin D deficiency [None]

NARRATIVE: CASE EVENT DATE: 20150820
